FAERS Safety Report 9016456 (Version 1)
Quarter: 2013Q1

REPORT INFORMATION
  Report Type: Report from Study
  Country: CZ (occurrence: CZ)
  Receive Date: 20130116
  Receipt Date: 20130116
  Transmission Date: 20140127
  Serious: Yes (Hospitalization)
  Sender: FDA-Public Use
  Company Number: CZ-ASTELLAS-2013EU000082

PATIENT
  Age: 75 Year
  Sex: Female
  Weight: 73 kg

DRUGS (8)
  1. SOLIFENACIN [Suspect]
     Indication: HYPERTONIC BLADDER
     Dosage: UNK
     Route: 048
     Dates: start: 20121107, end: 201212
  2. SORTIS [Concomitant]
     Indication: HYPERLIPIDAEMIA
     Dosage: 20 MG, UNKNOWN/D
     Route: 048
     Dates: start: 2006
  3. METFORMIN [Concomitant]
     Indication: DIABETES MELLITUS
     Dosage: 1000 MG, UNKNOWN/D
     Route: 048
     Dates: start: 201203
  4. LOZAP                              /01121602/ [Concomitant]
     Indication: HYPERTENSION
     Dosage: 100 MG, UNKNOWN/D
     Route: 048
     Dates: start: 2006
  5. VASOCARDIN [Concomitant]
     Indication: CORONARY ARTERY DISEASE
     Dosage: 25 MG, UNKNOWN/D
     Route: 048
     Dates: start: 2006
  6. MILURIT [Concomitant]
     Indication: HYPERURICAEMIA
     Dosage: 100 MG, UNKNOWN/D
     Route: 048
     Dates: start: 2008
  7. ANOPYRIN [Concomitant]
     Indication: CORONARY ARTERY DISEASE
     Dosage: 100 MG, UNKNOWN/D
     Route: 048
     Dates: start: 2006
  8. SYMBICORT [Concomitant]
     Indication: ASTHMA
     Dosage: 400 UG, UNKNOWN/D
     Route: 055
     Dates: start: 2010

REACTIONS (1)
  - Pyelonephritis acute [Recovered/Resolved]
